FAERS Safety Report 7473443-X (Version None)
Quarter: 2011Q2

REPORT INFORMATION
  Report Type: 
  Country: None (occurrence: None)
  Receive Date: 20110511
  Receipt Date: 20110505
  Transmission Date: 20111010
  Serious: No
  Sender: FDA-Public Use
  Company Number: US-ROXANE LABORATORIES, INC.-2011-RO-00630RO

PATIENT
  Sex: Female

DRUGS (7)
  1. PLAVIX [Concomitant]
  2. FLUTICASONE PROPIONATE [Suspect]
     Indication: UPPER-AIRWAY COUGH SYNDROME
     Route: 045
     Dates: start: 20110201
  3. NAMENDA [Concomitant]
  4. HYDRALAZINE HCL [Concomitant]
     Indication: HYPERTENSION
  5. BYSTOLIC [Concomitant]
     Indication: HYPERTENSION
  6. STALEVO 100 [Concomitant]
     Indication: PARKINSON'S DISEASE
  7. AZILECT [Concomitant]
     Indication: PARKINSON'S DISEASE

REACTIONS (1)
  - AGEUSIA [None]
